FAERS Safety Report 22632189 (Version 1)
Quarter: 2023Q2

REPORT INFORMATION
  Report Type: Spontaneous
  Country: US (occurrence: US)
  Receive Date: 20230623
  Receipt Date: 20230623
  Transmission Date: 20230722
  Serious: Yes (Other)
  Sender: FDA-Public Use
  Company Number: US-PROCTER_AND_GAMBLE-PH23003554

PATIENT
  Age: 29 Year
  Sex: Female
  Weight: 58.05 kg

DRUGS (1)
  1. PEPTO BISMOL CHEWS [Suspect]
     Active Substance: BISMUTH SUBSALICYLATE
     Indication: Dyspepsia
     Dosage: 1 CHEW AS NEEDED, LESS THAN 1 CHEW DAILY (ONLY WHEN I HAVE DIGESTIVE ISSUES)
     Route: 048
     Dates: start: 202301, end: 20230407

REACTIONS (5)
  - Tooth fracture [Not Recovered/Not Resolved]
  - Gingival bleeding [Unknown]
  - Product use complaint [Unknown]
  - Product physical issue [Unknown]
  - Underdose [Unknown]

NARRATIVE: CASE EVENT DATE: 20230101
